FAERS Safety Report 25814710 (Version 1)
Quarter: 2025Q3

REPORT INFORMATION
  Report Type: Spontaneous
  Country: US (occurrence: US)
  Receive Date: 20250917
  Receipt Date: 20250917
  Transmission Date: 20251020
  Serious: No
  Sender: BEIGENE
  Company Number: US-BEIGENE-BGN-2025-015900

PATIENT
  Age: 69 Year

DRUGS (1)
  1. BRUKINSA [Suspect]
     Active Substance: ZANUBRUTINIB
     Indication: Lymphoma
     Dosage: 80 MILLIGRAM, BID

REACTIONS (7)
  - Tremor [Unknown]
  - Dizziness [Unknown]
  - Chills [Unknown]
  - Influenza like illness [Unknown]
  - Neck pain [Unknown]
  - Pain in extremity [Unknown]
  - Off label use [Unknown]
